FAERS Safety Report 17843670 (Version 1)
Quarter: 2020Q2

REPORT INFORMATION
  Report Type: Spontaneous
  Country: HR (occurrence: HR)
  Receive Date: 20200531
  Receipt Date: 20200531
  Transmission Date: 20200714
  Serious: Yes (Other)
  Sender: FDA-Public Use
  Company Number: HR-ASTRAZENECA-2020SE67951

PATIENT
  Sex: Female

DRUGS (2)
  1. AMYZOL [Suspect]
     Active Substance: AMITRIPTYLINE
     Dosage: DAILY
     Route: 048
     Dates: start: 20200102, end: 20200102
  2. QUETIAPIN [Suspect]
     Active Substance: QUETIAPINE
     Dosage: DAILY
     Route: 048
     Dates: start: 20200102, end: 20200102

REACTIONS (3)
  - Intentional overdose [Unknown]
  - Suicide attempt [Unknown]
  - Tachycardia [Unknown]

NARRATIVE: CASE EVENT DATE: 20200102
